FAERS Safety Report 11215486 (Version 1)
Quarter: 2015Q2

REPORT INFORMATION
  Report Type: Spontaneous
  Country: IT (occurrence: IT)
  Receive Date: 20150624
  Receipt Date: 20150624
  Transmission Date: 20150821
  Serious: Yes (Other)
  Sender: FDA-Public Use
  Company Number: IT-BAYER-2015-027097

PATIENT
  Age: 68 Year
  Sex: Male

DRUGS (1)
  1. STIVARGA [Suspect]
     Active Substance: REGORAFENIB
     Indication: COLORECTAL ADENOCARCINOMA
     Dosage: DAILY DOSE 160 MG
     Route: 048
     Dates: start: 20141227, end: 20150117

REACTIONS (6)
  - Confusional state [Recovered/Resolved]
  - Somnolence [Recovered/Resolved]
  - Skin exfoliation [Recovered/Resolved]
  - Skin toxicity [Recovered/Resolved]
  - Neurotoxicity [Recovered/Resolved]
  - Erythema [Recovered/Resolved]

NARRATIVE: CASE EVENT DATE: 20150102
